FAERS Safety Report 6528334-5 (Version None)
Quarter: 2010Q1

REPORT INFORMATION
  Report Type: 
  Country: None (occurrence: None)
  Receive Date: 20100106
  Receipt Date: 20091225
  Transmission Date: 20100710
  Serious: Yes (Death, Life-Threatening)
  Sender: FDA-Public Use
  Company Number: PHHY2009JP53281

PATIENT
  Sex: Male

DRUGS (5)
  1. ZOLEDRONATE T29581+ [Suspect]
     Indication: PROSTATE CANCER
     Dosage: 4 MG, QMO
     Route: 042
     Dates: start: 20070810, end: 20071005
  2. ZOLEDRONATE T29581+ [Suspect]
     Indication: METASTASES TO BONE
  3. OXYCONTIN [Concomitant]
     Indication: CANCER PAIN
     Dosage: 20 MG, UNK
     Route: 048
     Dates: start: 20070808, end: 20070816
  4. NOVAMIN [Concomitant]
     Indication: PROPHYLAXIS
     Dosage: 15 MG, UNK
     Route: 048
     Dates: start: 20070808, end: 20070819
  5. DUROTEP [Concomitant]
     Indication: CANCER PAIN
     Dosage: 2.5 MG, UNK
     Route: 062
     Dates: start: 20070817, end: 20071023

REACTIONS (2)
  - DEHYDRATION [None]
  - MALIGNANT NEOPLASM PROGRESSION [None]
